FAERS Safety Report 8026970-0 (Version None)
Quarter: 2011Q4

REPORT INFORMATION
  Report Type: 
  Country: None (occurrence: None)
  Receive Date: 20111130
  Receipt Date: 20110808
  Transmission Date: 20120403
  Serious: Yes (Hospitalization, Other)
  Sender: FDA-Public Use
  Company Number: US201008003308

PATIENT
  Age: 50 Year
  Sex: Male
  Weight: 108.8 kg

DRUGS (22)
  1. ASPIRIN [Concomitant]
  2. VYTORIN [Concomitant]
  3. AMLODIPINE BESYLATE [Concomitant]
  4. LORATADINE [Concomitant]
  5. MAGNESIUM OXIDE [Concomitant]
  6. UROXATRAL [Concomitant]
  7. GLYBURIDE [Concomitant]
  8. ADVAIR HFA [Concomitant]
  9. FUROSEMIDE [Concomitant]
  10. BYETTA [Suspect]
     Indication: TYPE 2 DIABETES MELLITUS
     Dosage: 5 UG, BID
     Dates: start: 20080724, end: 20100101
  11. MICARDIS HCL (HYDROCHLOROTHIAZIDE, TELMISARTAN) [Concomitant]
  12. ATENOLOL [Concomitant]
  13. PLETAL [Concomitant]
  14. SPIRONOLACTONE [Concomitant]
  15. AMBIEN CR [Concomitant]
  16. JANUVIA [Concomitant]
  17. SINGULAIR [Concomitant]
  18. ALBUTEROL [Concomitant]
  19. SYNTHROID [Concomitant]
  20. PLAVIX [Concomitant]
  21. LANTUS [Concomitant]
  22. OXYCONTIN [Concomitant]

REACTIONS (5)
  - RENAL FAILURE CHRONIC [None]
  - BLOOD CREATININE INCREASED [None]
  - RENAL FAILURE ACUTE [None]
  - RENAL FAILURE [None]
  - OFF LABEL USE [None]
